FAERS Safety Report 5258756-4 (Version None)
Quarter: 2007Q1

REPORT INFORMATION
  Report Type: 
  Country: None (occurrence: None)
  Receive Date: 20070306
  Receipt Date: 20070306
  Transmission Date: 20070707
  Serious: Yes (Other)
  Sender: FDA-Public Use
  Company Number: None

PATIENT
  Age: 63 Year
  Sex: Male
  Weight: 221 kg

DRUGS (1)
  1. OXYCODONE SA [Suspect]
     Dosage: 40MG BID PO
     Route: 048

REACTIONS (2)
  - CARDIAC ARREST [None]
  - OVERDOSE [None]
